FAERS Safety Report 10047429 (Version 4)
Quarter: 2014Q2

REPORT INFORMATION
  Report Type: Report from Study
  Country: DE (occurrence: DE)
  Receive Date: 20140331
  Receipt Date: 20140626
  Transmission Date: 20141212
  Serious: Yes (Hospitalization, Other)
  Sender: FDA-Public Use
  Company Number: DE-JNJFOC-20140105028

PATIENT
  Age: 58 Year
  Sex: Male
  Weight: 108 kg

DRUGS (14)
  1. XARELTO [Suspect]
     Indication: DEEP VEIN THROMBOSIS
     Route: 048
     Dates: start: 20140101, end: 20140531
  2. XARELTO [Suspect]
     Indication: DEEP VEIN THROMBOSIS
     Route: 048
     Dates: start: 20131206, end: 20131231
  3. XARELTO [Suspect]
     Indication: THROMBOSIS PROPHYLAXIS
     Route: 048
     Dates: start: 20140101, end: 20140531
  4. XARELTO [Suspect]
     Indication: THROMBOSIS PROPHYLAXIS
     Route: 048
     Dates: start: 20131206, end: 20131231
  5. TORASEMID [Concomitant]
     Route: 065
     Dates: start: 201312
  6. RAMIPRIL [Concomitant]
     Route: 065
     Dates: start: 201312
  7. METFORMIN [Concomitant]
     Route: 065
     Dates: start: 201401
  8. METFORMIN [Concomitant]
     Route: 065
     Dates: start: 201312, end: 201401
  9. BELOC-ZOK [Concomitant]
     Route: 065
     Dates: start: 201312
  10. ALDACTONE [Concomitant]
     Route: 065
     Dates: start: 201312
  11. AMIODARON [Concomitant]
     Route: 065
     Dates: start: 20140112
  12. AMIODARON [Concomitant]
     Route: 065
     Dates: start: 20140102, end: 20140111
  13. HEPARIN [Concomitant]
     Route: 065
     Dates: start: 20131202, end: 20131203
  14. HEPARIN [Concomitant]
     Route: 065
     Dates: start: 20140604

REACTIONS (4)
  - Blue toe syndrome [Not Recovered/Not Resolved]
  - Atrial flutter [Unknown]
  - Toe amputation [Not Recovered/Not Resolved]
  - Prostate cancer [Not Recovered/Not Resolved]
